FAERS Safety Report 9321275 (Version 2)
Quarter: 2013Q2

REPORT INFORMATION
  Report Type: Spontaneous
  Country: IT (occurrence: None)
  Receive Date: 20130528
  Receipt Date: 20130612
  Transmission Date: 20140414
  Serious: Yes (Life-Threatening, Other)
  Sender: FDA-Public Use
  Company Number: 2013P1006350

PATIENT
  Age: 76 Year
  Sex: Female

DRUGS (9)
  1. ZANTAC [Suspect]
     Route: 042
     Dates: start: 20130219, end: 20130219
  2. LANOXIN [Concomitant]
  3. PANTORC [Concomitant]
  4. CLEXANE [Concomitant]
  5. METFORMINA [Concomitant]
  6. NORVASC [Concomitant]
  7. COMBISARTAN [Concomitant]
  8. XANAX [Concomitant]
  9. DIAMICRON [Concomitant]

REACTIONS (4)
  - Anaphylactic reaction [None]
  - Rash [None]
  - Malaise [None]
  - Dyspnoea [None]
